FAERS Safety Report 21504946 (Version 2)
Quarter: 2022Q4

REPORT INFORMATION
  Report Type: Report from Study
  Country: ES (occurrence: ES)
  Receive Date: 20221025
  Receipt Date: 20221031
  Transmission Date: 20230112
  Serious: Yes (Hospitalization)
  Sender: FDA-Public Use
  Company Number: ES-BRISTOL-MYERS SQUIBB COMPANY-2022-090652

PATIENT
  Sex: Female
  Weight: 50 kg

DRUGS (11)
  1. NIVOLUMAB [Suspect]
     Active Substance: NIVOLUMAB
     Indication: Malignant melanoma
     Dosage: RECEIVED ONLY ONE DOSE. MOST RECENT DOSE ON 26-JUL-2022.
     Route: 042
     Dates: start: 20220726
  2. OMEPRAZOLE [Concomitant]
     Active Substance: OMEPRAZOLE
     Indication: Product used for unknown indication
     Dosage: ONGOING
     Route: 048
     Dates: start: 202206
  3. MORPHINE [Concomitant]
     Active Substance: MORPHINE
     Indication: Product used for unknown indication
     Route: 042
     Dates: start: 20220811, end: 20220812
  4. PANTOPRAZOLE SODIUM [Concomitant]
     Active Substance: PANTOPRAZOLE SODIUM
     Indication: Product used for unknown indication
     Route: 042
     Dates: start: 20220811, end: 20220812
  5. METOCLOPRAMIDE [Concomitant]
     Active Substance: METOCLOPRAMIDE
     Indication: Product used for unknown indication
     Route: 042
     Dates: start: 20220811, end: 20220812
  6. ONDANSETRON [Concomitant]
     Active Substance: ONDANSETRON
     Indication: Product used for unknown indication
     Route: 042
     Dates: start: 20220811, end: 20220812
  7. LOPERAMIDE [Concomitant]
     Active Substance: LOPERAMIDE
     Indication: Product used for unknown indication
     Route: 048
     Dates: start: 20220811, end: 20220811
  8. ENOXAPARIN [Concomitant]
     Active Substance: ENOXAPARIN
     Indication: Product used for unknown indication
     Route: 058
     Dates: start: 20220811, end: 20220812
  9. GLUCOSE SOLUTION 10% [Concomitant]
     Indication: Product used for unknown indication
     Dosage: 1 DF= 500 UNITS NOS
     Route: 042
     Dates: start: 20220811, end: 20220811
  10. POTASSIUM CHLORIDE [Concomitant]
     Active Substance: POTASSIUM CHLORIDE
     Indication: Product used for unknown indication
     Dosage: 1 DF= 20 UNITS NOS
     Route: 042
     Dates: start: 20220811, end: 20220811
  11. PHYSIOLOGICAL SALINE [Concomitant]
     Indication: Product used for unknown indication
     Dosage: 1 DF= 500 UNITS NOS
     Route: 042
     Dates: start: 20220811, end: 20220812

REACTIONS (2)
  - Pyrexia [Recovered/Resolved]
  - Hypertransaminasaemia [Recovered/Resolved]

NARRATIVE: CASE EVENT DATE: 20220811
